FAERS Safety Report 24363268 (Version 2)
Quarter: 2025Q1

REPORT INFORMATION
  Report Type: Spontaneous
  Country: ES (occurrence: ES)
  Receive Date: 20240925
  Receipt Date: 20250220
  Transmission Date: 20250408
  Serious: Yes (Life-Threatening, Hospitalization, Other)
  Sender: ELI LILLY AND COMPANY
  Company Number: None

PATIENT
  Age: 57 Year
  Sex: Female
  Weight: 58.8 kg

DRUGS (5)
  1. FLUOXETINE HYDROCHLORIDE [Interacting]
     Active Substance: FLUOXETINE HYDROCHLORIDE
     Indication: Personality disorder
     Route: 048
     Dates: start: 20240901, end: 20240901
  2. CLORAZEPATE DIPOTASSIUM [Interacting]
     Active Substance: CLORAZEPATE DIPOTASSIUM
     Indication: Suicide attempt
     Route: 048
     Dates: start: 20240901, end: 20240901
  3. LORMETAZEPAM [Interacting]
     Active Substance: LORMETAZEPAM
     Indication: Suicide attempt
     Route: 048
     Dates: start: 20240901, end: 20240901
  4. TOPIRAMATE [Interacting]
     Active Substance: TOPIRAMATE
     Indication: Suicide attempt
     Route: 048
     Dates: start: 20240901, end: 20240901
  5. QUETIAPINE [Interacting]
     Active Substance: QUETIAPINE
     Indication: Suicide attempt
     Route: 048
     Dates: start: 20240901, end: 20240901

REACTIONS (4)
  - Depressed level of consciousness [Recovered/Resolved]
  - Overdose [Unknown]
  - Drug interaction [Unknown]
  - Off label use [Unknown]

NARRATIVE: CASE EVENT DATE: 20240901
